FAERS Safety Report 19085931 (Version 5)
Quarter: 2021Q3

REPORT INFORMATION
  Report Type: Report from Study
  Country: FR (occurrence: FR)
  Receive Date: 20210402
  Receipt Date: 20210706
  Transmission Date: 20211014
  Serious: Yes (Death, Other)
  Sender: FDA-Public Use
  Company Number: FR-TAKEDA-2021TUS021138

PATIENT
  Sex: Male
  Weight: 87 kg

DRUGS (4)
  1. REVLIMID [Suspect]
     Active Substance: LENALIDOMIDE
     Indication: PLASMA CELL MYELOMA
     Dosage: UNK
     Route: 065
     Dates: start: 20180711
  2. IXAZOMIB [Suspect]
     Active Substance: IXAZOMIB
     Indication: OEDEMA
     Dosage: UNK
     Route: 065
     Dates: start: 20180614
  3. IXAZOMIB [Suspect]
     Active Substance: IXAZOMIB
     Indication: PLASMA CELL MYELOMA REFRACTORY
  4. DEXAMETHASONE. [Suspect]
     Active Substance: DEXAMETHASONE
     Indication: PLASMA CELL MYELOMA
     Dosage: UNK
     Route: 065
     Dates: start: 20180711

REACTIONS (8)
  - Plasma cell myeloma [Fatal]
  - Cough [Recovered/Resolved]
  - Oedema peripheral [Recovered/Resolved]
  - Asthenia [Unknown]
  - Lymphopenia [Recovering/Resolving]
  - Osteolysis [Not Recovered/Not Resolved]
  - Metastases to bone [Not Recovered/Not Resolved]
  - Off label use [Unknown]

NARRATIVE: CASE EVENT DATE: 20180614
